FAERS Safety Report 7115146-7 (Version None)
Quarter: 2010Q4

REPORT INFORMATION
  Report Type: 
  Country: None (occurrence: None)
  Receive Date: 20101122
  Receipt Date: 20101109
  Transmission Date: 20110411
  Serious: Yes (Hospitalization, Other)
  Sender: FDA-Public Use
  Company Number: US-BAYER-201016803NA

PATIENT
  Age: 18 Year
  Sex: Female
  Weight: 64 kg

DRUGS (4)
  1. YAZ [Suspect]
     Indication: CONTRACEPTION
     Dates: start: 20070701, end: 20071001
  2. YASMIN [Suspect]
     Indication: CONTRACEPTION
     Route: 048
     Dates: start: 20071101, end: 20081001
  3. OCELLA [Suspect]
     Indication: CONTRACEPTION
     Dates: start: 20081201, end: 20091101
  4. PERCOCET [Concomitant]

REACTIONS (7)
  - ABDOMINAL PAIN UPPER [None]
  - CHEST PAIN [None]
  - CHOLECYSTITIS CHRONIC [None]
  - CHOLELITHIASIS [None]
  - DYSMENORRHOEA [None]
  - MURPHY'S SIGN POSITIVE [None]
  - NAUSEA [None]
